FAERS Safety Report 14940390 (Version 1)
Quarter: 2018Q2

REPORT INFORMATION
  Report Type: Report from Study
  Country: BR (occurrence: BR)
  Receive Date: 20180525
  Receipt Date: 20180525
  Transmission Date: 20180711
  Serious: Yes (Death)
  Sender: FDA-Public Use
  Company Number: PHHY2018BR008163

PATIENT
  Age: 86 Year
  Sex: Female
  Weight: 50 kg

DRUGS (1)
  1. EXELON PATCH [Suspect]
     Active Substance: RIVASTIGMINE
     Indication: AMNESIA
     Dosage: 9.5 MG (PATCH 10CM2), QD
     Route: 062
     Dates: start: 201712

REACTIONS (1)
  - Death [Fatal]

NARRATIVE: CASE EVENT DATE: 20180429
